FAERS Safety Report 5246965-X (Version None)
Quarter: 2007Q1

REPORT INFORMATION
  Report Type: 
  Country: None (occurrence: None)
  Receive Date: 20070226
  Receipt Date: 20070222
  Transmission Date: 20070707
  Serious: Yes (Other)
  Sender: FDA-Public Use
  Company Number: US-GLAXOSMITHKLINE-A0640602A

PATIENT
  Age: 73 Year
  Sex: Female

DRUGS (5)
  1. WELLBUTRIN [Suspect]
     Indication: DRUG USE FOR UNKNOWN INDICATION
     Dosage: 100MG PER DAY
     Route: 048
     Dates: start: 20070208
  2. ENAPRIL [Concomitant]
  3. PRAVACHOL [Concomitant]
  4. HYDROCHLOROTHIAZIDE [Concomitant]
  5. VALIUM [Concomitant]

REACTIONS (4)
  - CONFUSIONAL STATE [None]
  - DYSPHEMIA [None]
  - HYPOMANIA [None]
  - PHARMACEUTICAL PRODUCT COMPLAINT [None]
